FAERS Safety Report 17453121 (Version 1)
Quarter: 2020Q1

REPORT INFORMATION
  Report Type: Spontaneous
  Country: SI (occurrence: SI)
  Receive Date: 20200224
  Receipt Date: 20200224
  Transmission Date: 20200409
  Serious: Yes (Other)
  Sender: FDA-Public Use
  Company Number: SI-MYLANLABS-2020M1019209

PATIENT
  Age: 52 Year
  Sex: Female

DRUGS (3)
  1. FULVESTRANT. [Suspect]
     Active Substance: FULVESTRANT
     Indication: BREAST CANCER
     Dosage: 500 MG
     Route: 065
  2. KISQALI [Suspect]
     Active Substance: RIBOCICLIB
     Indication: BREAST CANCER
     Dosage: 600 MILLIGRAM, 600 MG (3 TBL ONCE DAILY)
     Route: 065
  3. FEMARA [Suspect]
     Active Substance: LETROZOLE
     Indication: BREAST CANCER
     Dosage: 2.5 MILLIGRAM, QD, 2.5 MG (1 TBL PER DAY)
     Route: 065

REACTIONS (11)
  - Pruritus [Recovering/Resolving]
  - Abdominal pain upper [Recovered/Resolved]
  - Neutropenia [Unknown]
  - Spinal pain [Recovering/Resolving]
  - Bone pain [Unknown]
  - Rash [Recovering/Resolving]
  - Rash macular [Unknown]
  - Tumour pain [Unknown]
  - Periorbital swelling [Unknown]
  - Skin toxicity [Recovering/Resolving]
  - Abdominal pain [Unknown]

NARRATIVE: CASE EVENT DATE: 201802
